FAERS Safety Report 9705855 (Version 3)
Quarter: 2013Q4

REPORT INFORMATION
  Report Type: Spontaneous
  Country: JP (occurrence: JP)
  Receive Date: 20131122
  Receipt Date: 20131218
  Transmission Date: 20140711
  Serious: Yes (Hospitalization)
  Sender: FDA-Public Use
  Company Number: JP-ASTRAZENECA-2013SE84896

PATIENT
  Age: 76 Year
  Sex: Female
  Weight: 51 kg

DRUGS (14)
  1. FASLODEX [Suspect]
     Indication: METASTASES TO BONE MARROW
     Route: 030
     Dates: start: 20130917
  2. FASLODEX [Suspect]
     Indication: METASTASES TO BONE MARROW
     Route: 030
     Dates: start: 20131001
  3. FASLODEX [Suspect]
     Indication: METASTASES TO BONE MARROW
     Route: 030
     Dates: start: 20131015
  4. FASLODEX [Suspect]
     Indication: METASTASES TO BONE MARROW
     Route: 030
     Dates: start: 20131112
  5. RANMARK [Concomitant]
     Indication: METASTASES TO BONE MARROW
     Route: 058
     Dates: start: 20130730
  6. JANUVIA [Concomitant]
     Indication: DIABETES MELLITUS
     Dosage: DOSE UNKNOWN
     Route: 065
  7. GLIMEPIRIDE [Concomitant]
     Indication: DIABETES MELLITUS
     Dosage: DOSE UNKNOWN
     Route: 065
  8. AMLODIPINE [Concomitant]
     Indication: HYPERTENSION
     Dosage: DOSE UNKNOWN
     Route: 065
  9. OMEPRAZOLE [Concomitant]
     Dosage: DOSE UNKNOWN
     Route: 065
  10. CODEINE PHOSPHATE HYDRATE [Concomitant]
     Dosage: DOSE UNKNOWN
     Route: 065
  11. LYRICA [Concomitant]
     Dosage: DOSE UNKNOWN
     Route: 065
  12. NOVORAPID [Concomitant]
     Indication: DIABETES MELLITUS
     Dosage: DOSE UNKNOWN
     Route: 065
  13. FLEX [Concomitant]
     Indication: DIABETES MELLITUS
     Dosage: DOSE UNKNOWN
     Route: 065
  14. LANTUS [Concomitant]
     Indication: DIABETES MELLITUS
     Dosage: DOSE UNKNOWN
     Route: 065

REACTIONS (3)
  - Uterine haemorrhage [Recovering/Resolving]
  - Endometrial atrophy [Unknown]
  - Endometritis [Unknown]
